FAERS Safety Report 20761683 (Version 3)
Quarter: 2022Q2

REPORT INFORMATION
  Report Type: Spontaneous
  Country: JP (occurrence: JP)
  Receive Date: 20220428
  Receipt Date: 20220609
  Transmission Date: 20220721
  Serious: Yes (Life-Threatening, Hospitalization)
  Sender: FDA-Public Use
  Company Number: JP-BAYER-2022A057995

PATIENT
  Age: 86 Year
  Sex: Female
  Weight: 39.4 kg

DRUGS (15)
  1. VERICIGUAT HYDROCHLORIDE [Suspect]
     Active Substance: VERICIGUAT HYDROCHLORIDE
     Indication: Cardiac failure
     Dosage: 2.5 MG X 1/2 TABLET
     Route: 048
     Dates: start: 20220420, end: 20220421
  2. DAPRODUSTAT [Concomitant]
     Active Substance: DAPRODUSTAT
     Dosage: 4 MILLIGRAM, QD
  3. DAPAGLIFLOZIN [Concomitant]
     Active Substance: DAPAGLIFLOZIN
     Dosage: 10 MILLIGRAM, QD
  4. ENTRESTO [Concomitant]
     Active Substance: SACUBITRIL\VALSARTAN
     Dosage: 400 MILLIGRAM, QD
     Dates: start: 20220424
  5. AZOSEMIDE [Concomitant]
     Active Substance: AZOSEMIDE
     Dosage: 30 MILLIGRAM, QD
     Dates: start: 20220422
  6. AZOSEMIDE [Concomitant]
     Active Substance: AZOSEMIDE
     Dosage: 30 MILLIGRAM, QD
     Dates: start: 20220504
  7. SAMSCA [Concomitant]
     Active Substance: TOLVAPTAN
     Dosage: 15 MILLIGRAM, QD
     Dates: start: 20220411, end: 20220422
  8. SAMSCA [Concomitant]
     Active Substance: TOLVAPTAN
     Dosage: 15 MILLIGRAM, QD
     Dates: start: 20220504
  9. CLOPIDOGREL [Concomitant]
     Active Substance: CLOPIDOGREL BISULFATE
     Dosage: 75 MILLIGRAM, QD
  10. EDOXABAN TOSYLATE [Concomitant]
     Active Substance: EDOXABAN TOSYLATE
     Dosage: 15 MILLIGRAM, QD
  11. SODIUM FERROUS CITRATE [Concomitant]
     Active Substance: SODIUM FERROUS CITRATE
     Dosage: 2 DOSAGE FORM
  12. VONOPRAZAN FUMARATE [Concomitant]
     Active Substance: VONOPRAZAN FUMARATE
     Dosage: 10 MILLIGRAM, QD
  13. ASPIRIN [Concomitant]
     Active Substance: ASPIRIN
     Dosage: 100 MILLIGRAM, QD
     Dates: start: 20220421
  14. SODIUM FERROUS CITRATE [Concomitant]
     Active Substance: SODIUM FERROUS CITRATE
     Dosage: 100 MILLIGRAM, QD
  15. ELDECALCITOL [Concomitant]
     Active Substance: ELDECALCITOL
     Dosage: 0.75 MICROGRAM, QD

REACTIONS (8)
  - Cardio-respiratory arrest [Recovered/Resolved]
  - Loss of consciousness [Recovered/Resolved]
  - Fall [Unknown]
  - Ventricular fibrillation [Recovered/Resolved]
  - Electrocardiogram ST segment elevation [Recovered/Resolved]
  - Coronary artery occlusion [Recovering/Resolving]
  - Anaemia [Unknown]
  - Off label use [Unknown]

NARRATIVE: CASE EVENT DATE: 20220420
